FAERS Safety Report 14240495 (Version 1)
Quarter: 2017Q4

REPORT INFORMATION
  Report Type: Report from Study
  Country: US (occurrence: US)
  Receive Date: 20171130
  Receipt Date: 20171130
  Transmission Date: 20180321
  Serious: Yes (Hospitalization)
  Sender: FDA-Public Use
  Company Number: US-PFIZER INC-2017509318

PATIENT
  Age: 59 Year
  Sex: Male
  Weight: 105 kg

DRUGS (4)
  1. EVEROLIMUS. [Suspect]
     Active Substance: EVEROLIMUS
     Indication: GLIOBLASTOMA MULTIFORME
     Dosage: EVEROLIMUS (RAD), 170MG, UNK
     Route: 048
     Dates: start: 20130620
  2. COMPARATOR TEMOZOLOMIDE [Suspect]
     Active Substance: TEMOZOLOMIDE
     Indication: GLIOBLASTOMA MULTIFORME
     Dosage: 2400 MG, UNK
     Dates: start: 20130620
  3. CEREBYX [Suspect]
     Active Substance: FOSPHENYTOIN SODIUM
  4. ATIVAN [Suspect]
     Active Substance: LORAZEPAM

REACTIONS (3)
  - Respiratory failure [Recovered/Resolved]
  - Seizure [Recovered/Resolved]
  - Confusional state [Recovered/Resolved]

NARRATIVE: CASE EVENT DATE: 20140618
